FAERS Safety Report 8303049-1 (Version None)
Quarter: 2012Q2

REPORT INFORMATION
  Report Type: 
  Country: None (occurrence: None)
  Receive Date: 20120422
  Receipt Date: 20120319
  Transmission Date: 20120825
  Serious: Yes (Other)
  Sender: FDA-Public Use
  Company Number: FR-BAXTER-2012BAX000889

PATIENT
  Sex: Male

DRUGS (5)
  1. IFOSFAMIDE [Suspect]
     Route: 064
  2. UROMITEXAN 1 G/10 ML, SOLUTION INJECTABLE POUR PERFUSION EN FLACON [Concomitant]
     Route: 064
  3. ONDANSETRON [Concomitant]
     Route: 064
  4. DOXORUBICIN HCL [Suspect]
     Route: 064
  5. METOCLOPRAMIDE [Concomitant]
     Route: 064

REACTIONS (2)
  - PREMATURE BABY [None]
  - FOETAL EXPOSURE DURING PREGNANCY [None]
